FAERS Safety Report 12847015 (Version 4)
Quarter: 2017Q1

REPORT INFORMATION
  Report Type: Report from Study
  Country: US (occurrence: US)
  Receive Date: 20161014
  Receipt Date: 20170104
  Transmission Date: 20170428
  Serious: Yes (Hospitalization, Other)
  Sender: FDA-Public Use
  Company Number: US-BAYER-2016-170293

PATIENT
  Age: 70 Year
  Sex: Male

DRUGS (3)
  1. NEXAVAR [Suspect]
     Active Substance: SORAFENIB
     Indication: HEPATOCELLULAR CARCINOMA
     Dosage: 400 MG, BID
     Route: 048
     Dates: start: 20160822, end: 201609
  2. NEXAVAR [Suspect]
     Active Substance: SORAFENIB
     Indication: HEPATOCELLULAR CARCINOMA
     Dosage: 400 MG, BID
     Route: 048
     Dates: start: 20161024, end: 201611
  3. NEXAVAR [Suspect]
     Active Substance: SORAFENIB
     Indication: HEPATOCELLULAR CARCINOMA
     Dosage: 200 MG, BID
     Route: 048
     Dates: start: 201611, end: 20161225

REACTIONS (24)
  - Orchidectomy [None]
  - Haematuria [None]
  - Pain of skin [None]
  - Cystitis [None]
  - Fatigue [None]
  - Pain in extremity [None]
  - Incision site haemorrhage [None]
  - Dysuria [None]
  - Headache [None]
  - Myalgia [None]
  - Pyrexia [None]
  - Haematuria [None]
  - Blood pressure increased [Recovered/Resolved]
  - Pruritus [None]
  - Blister [None]
  - Prostatic operation [None]
  - Blood glucose increased [None]
  - Hypoaesthesia [None]
  - Medical procedure [None]
  - Diarrhoea [None]
  - Blister [None]
  - Chills [None]
  - Dysuria [None]
  - Dysphonia [None]

NARRATIVE: CASE EVENT DATE: 2016
